FAERS Safety Report 4930194-0 (Version None)
Quarter: 2006Q1

REPORT INFORMATION
  Report Type: 
  Country: None (occurrence: None)
  Receive Date: 20060302
  Receipt Date: 20060221
  Transmission Date: 20060701
  Serious: Yes (Other)
  Sender: FDA-Public Use
  Company Number: HU-ROCHE-437382

PATIENT
  Sex: Female

DRUGS (2)
  1. ROACCUTAN [Suspect]
     Indication: ACNE
     Dosage: REGIMEN REPORTED AS 2 - 3 CAPSULES PER WEEK.
     Route: 048
     Dates: start: 20050615
  2. ROACCUTAN [Suspect]
     Route: 048
     Dates: start: 20000615

REACTIONS (2)
  - NO ADVERSE EFFECT [None]
  - PREGNANCY [None]
